FAERS Safety Report 5670864-2 (Version None)
Quarter: 2008Q1

REPORT INFORMATION
  Report Type: 
  Country: None (occurrence: None)
  Receive Date: 20080318
  Receipt Date: 20080311
  Transmission Date: 20080703
  Serious: Yes (Hospitalization)
  Sender: FDA-Public Use
  Company Number: US-MERCK-0803USA01848

PATIENT
  Age: 88 Year
  Sex: Female

DRUGS (2)
  1. JANUMET [Suspect]
     Route: 048
     Dates: start: 20080301
  2. JANUMET [Suspect]
     Route: 048

REACTIONS (4)
  - MALAISE [None]
  - NAUSEA [None]
  - STOMACH DISCOMFORT [None]
  - VOMITING [None]
